FAERS Safety Report 13802263 (Version 4)
Quarter: 2017Q4

REPORT INFORMATION
  Report Type: Spontaneous
  Country: US (occurrence: US)
  Receive Date: 20170727
  Receipt Date: 20171027
  Transmission Date: 20180320
  Serious: Yes (Hospitalization)
  Sender: FDA-Public Use
  Company Number: US-ACTELION-A-US2017-156383

PATIENT
  Age: 34 Year
  Sex: Female
  Weight: 86.17 kg

DRUGS (10)
  1. LETAIRIS [Concomitant]
     Active Substance: AMBRISENTAN
  2. XARELTO [Concomitant]
     Active Substance: RIVAROXABAN
  3. ALDACTONE [Concomitant]
     Active Substance: SPIRONOLACTONE
  4. VELETRI [Suspect]
     Active Substance: EPOPROSTENOL
     Indication: PULMONARY ARTERIAL HYPERTENSION
     Dosage: 26 NG/KG, PER MIN
     Route: 042
  5. COUMADIN [Concomitant]
     Active Substance: WARFARIN SODIUM
  6. LASIX [Concomitant]
     Active Substance: FUROSEMIDE
  7. HYDROCHLOROTHIAZIDE. [Concomitant]
     Active Substance: HYDROCHLOROTHIAZIDE
  8. ADCIRCA [Suspect]
     Active Substance: TADALAFIL
     Indication: PRODUCT USED FOR UNKNOWN INDICATION
     Route: 065
  9. LEVOTHYROXINE. [Concomitant]
     Active Substance: LEVOTHYROXINE
  10. OXYCODONE [Concomitant]
     Active Substance: OXYCODONE

REACTIONS (13)
  - Nausea [Unknown]
  - Vomiting [Unknown]
  - Staphylococcus test positive [Recovered/Resolved]
  - Catheter site infection [Recovered/Resolved]
  - Device issue [Unknown]
  - Chest pain [Unknown]
  - Dyspnoea [Unknown]
  - Migraine [Unknown]
  - Catheter site erythema [Recovered/Resolved]
  - Catheter site discharge [Recovered/Resolved]
  - Abdominal pain upper [Unknown]
  - Catheter site pain [Recovered/Resolved]
  - Blood culture negative [Recovered/Resolved]

NARRATIVE: CASE EVENT DATE: 20170628
